FAERS Safety Report 4713986-2 (Version None)
Quarter: 2005Q3

REPORT INFORMATION
  Report Type: 
  Country: None (occurrence: None)
  Receive Date: 20050712
  Receipt Date: 20050624
  Transmission Date: 20060218
  Serious: Yes (Other)
  Sender: FDA-Public Use
  Company Number: EWC050644719

PATIENT
  Age: 74 Year
  Sex: Female

DRUGS (7)
  1. GEMCITABINE HYDROCHLORIDE-IV (GEMCITABINE) [Suspect]
     Indication: BREAST CANCER
     Dosage: 1 G OTHER
     Route: 050
     Dates: start: 20050622, end: 20050622
  2. GEMCITABINE HYDROCHLORIDE-IV (GEMCITABINE) [Suspect]
     Indication: METASTASES TO LIVER
     Dosage: 1 G OTHER
     Route: 050
     Dates: start: 20050622, end: 20050622
  3. TAXOTERE [Concomitant]
  4. TROPOSETRON [Concomitant]
  5. CLEMASTINE [Concomitant]
  6. ANASTROZOLE [Concomitant]
  7. CANDESARTAN CILEXETIL [Concomitant]

REACTIONS (1)
  - URTICARIA [None]
